FAERS Safety Report 5648122-1 (Version None)
Quarter: 2008Q1

REPORT INFORMATION
  Report Type: 
  Country: None (occurrence: None)
  Receive Date: 20080304
  Receipt Date: 20080222
  Transmission Date: 20080703
  Serious: Yes (Hospitalization)
  Sender: FDA-Public Use
  Company Number: US-JNJFOC-20080205781

PATIENT
  Sex: Female
  Weight: 50.35 kg

DRUGS (6)
  1. FENTANYL TRANSDERMAL SYSTEM [Suspect]
     Indication: BACK PAIN
     Route: 062
  2. FENTANYL TRANSDERMAL SYSTEM [Suspect]
     Indication: BACK PAIN
     Route: 062
  3. SINGULAIR [Concomitant]
     Route: 048
  4. COREG [Concomitant]
     Indication: CARDIAC DISORDER
     Route: 048
  5. NITROGLYCERIN [Concomitant]
     Route: 062
  6. LIPITOR [Concomitant]
     Indication: BLOOD CHOLESTEROL INCREASED
     Route: 048

REACTIONS (3)
  - DIVERTICULUM [None]
  - GASTRIC DISORDER [None]
  - RECTAL HAEMORRHAGE [None]
